FAERS Safety Report 16328617 (Version 2)
Quarter: 2019Q3

REPORT INFORMATION
  Report Type: Spontaneous
  Country: FR (occurrence: FR)
  Receive Date: 20190518
  Receipt Date: 20190809
  Transmission Date: 20191004
  Serious: Yes (Other)
  Sender: FDA-Public Use
  Company Number: PHHY2019FR108562

PATIENT
  Age: 69 Year
  Sex: Female
  Weight: 79.8 kg

DRUGS (4)
  1. VORICONAZOLE. [Suspect]
     Active Substance: VORICONAZOLE
     Dosage: 1.9 MG/L, UNK
     Route: 065
  2. MABELIO [Suspect]
     Active Substance: CEFTOBIPROLE
     Indication: PNEUMONIA STAPHYLOCOCCAL
     Dosage: 39.4 MG/L, UNK
     Route: 065
  3. VORICONAZOLE. [Suspect]
     Active Substance: VORICONAZOLE
     Indication: PRODUCT USED FOR UNKNOWN INDICATION
     Dosage: 10.9 MG/L, UNK
     Route: 065
  4. MABELIO [Suspect]
     Active Substance: CEFTOBIPROLE
     Indication: PNEUMONIA BACTERIAL
     Dosage: 13.2 MG/L, UNK
     Route: 065

REACTIONS (2)
  - Respiratory distress [Unknown]
  - Seizure [Recovered/Resolved]
